FAERS Safety Report 9760726 (Version 1)
Quarter: 2013Q4

REPORT INFORMATION
  Report Type: Spontaneous
  Country: US (occurrence: US)
  Receive Date: 20131216
  Receipt Date: 20131216
  Transmission Date: 20140711
  Serious: No
  Sender: FDA-Public Use
  Company Number: US-BIOGENIDEC-2013BI101423

PATIENT
  Age: 59 Year
  Sex: Female

DRUGS (13)
  1. TECFIDERA [Suspect]
     Indication: MULTIPLE SCLEROSIS
     Route: 048
     Dates: start: 20130920, end: 20131018
  2. AVONEX [Concomitant]
     Route: 030
     Dates: start: 20020520, end: 20130920
  3. AVONEX [Concomitant]
     Route: 030
     Dates: start: 20131021
  4. B12- ACTIVE [Concomitant]
  5. BACLOFEN [Concomitant]
  6. CALCIUM + D [Concomitant]
  7. CITALOPRAM HYDROBROMIDE [Concomitant]
  8. COQ-10 [Concomitant]
  9. FOLIC ACID [Concomitant]
  10. GINGER ROOT [Concomitant]
  11. GLUCOSAMINE- CHRONDROITIN- MSM [Concomitant]
  12. LEVOTHYROXINE SODIUM [Concomitant]
  13. MILK THISTLE [Concomitant]

REACTIONS (9)
  - Pyrexia [Unknown]
  - Pain [Unknown]
  - Faeces discoloured [Recovered/Resolved]
  - Diarrhoea [Unknown]
  - Vomiting [Unknown]
  - Nausea [Recovered/Resolved]
  - Abdominal pain [Unknown]
  - Flushing [Unknown]
  - Abdominal pain upper [Recovered/Resolved]
